FAERS Safety Report 6549010-9 (Version None)
Quarter: 2010Q1

REPORT INFORMATION
  Report Type: 
  Country: None (occurrence: None)
  Receive Date: 20100125
  Receipt Date: 20100115
  Transmission Date: 20100710
  Serious: Yes (Hospitalization, Other)
  Sender: FDA-Public Use
  Company Number: CH-JNJFOC-20100104895

PATIENT
  Age: 48 Year
  Sex: Male

DRUGS (4)
  1. HALDOL [Suspect]
     Indication: SCHIZOPHRENIA
     Route: 048
  2. RISPERDAL [Suspect]
     Indication: SCHIZOPHRENIA
     Route: 048
  3. TEMESTA [Concomitant]
     Route: 048
  4. TEMESTA [Concomitant]
     Route: 048

REACTIONS (5)
  - DYSKINESIA [None]
  - DYSPNOEA [None]
  - FEAR [None]
  - OROPHARYNGEAL SPASM [None]
  - VOMITING [None]
